FAERS Safety Report 19906891 (Version 5)
Quarter: 2022Q1

REPORT INFORMATION
  Report Type: Report from Study
  Country: MY (occurrence: None)
  Receive Date: 20211001
  Receipt Date: 20220330
  Transmission Date: 20220423
  Serious: Yes (Hospitalization)
  Sender: FDA-Public Use
  Company Number: MY-EISAI MEDICAL RESEARCH-EC-2021-100563

PATIENT
  Age: 71 Year
  Sex: Male
  Weight: 55.4 kg

DRUGS (11)
  1. LENVATINIB [Suspect]
     Active Substance: LENVATINIB
     Indication: Non-small cell lung cancer metastatic
     Route: 048
     Dates: start: 20191223
  2. PEMBROLIZUMAB [Suspect]
     Active Substance: PEMBROLIZUMAB
     Indication: Non-small cell lung cancer metastatic
     Route: 041
     Dates: start: 20191223, end: 20191223
  3. PEMBROLIZUMAB [Suspect]
     Active Substance: PEMBROLIZUMAB
     Route: 041
     Dates: start: 20200114
  4. AMLODIPINE [Concomitant]
     Active Substance: AMLODIPINE BESYLATE
     Dates: start: 20191028, end: 20200106
  5. COLCHICINE [Concomitant]
     Active Substance: COLCHICINE
     Dates: start: 201901
  6. CELEBREX [Concomitant]
     Active Substance: CELECOXIB
     Dates: start: 201901
  7. KETOPROFEN [Concomitant]
     Active Substance: KETOPROFEN
     Dates: start: 201910
  8. ALLOPURINOL [Concomitant]
     Active Substance: ALLOPURINOL
     Dates: start: 201901
  9. ASPIRIN [Concomitant]
     Active Substance: ASPIRIN
     Dates: start: 201901
  10. GLICLAZIDE [Concomitant]
     Active Substance: GLICLAZIDE
     Dates: start: 201911
  11. LOSARTAN POTASSIUM [Concomitant]
     Active Substance: LOSARTAN POTASSIUM
     Dates: start: 20191127, end: 20200106

REACTIONS (2)
  - Upper gastrointestinal haemorrhage [Recovered/Resolved]
  - Pneumonia [Recovered/Resolved]

NARRATIVE: CASE EVENT DATE: 20200105
